FAERS Safety Report 22291457 (Version 2)
Quarter: 2023Q2

REPORT INFORMATION
  Report Type: Report from Study
  Country: US (occurrence: US)
  Receive Date: 20230506
  Receipt Date: 20230612
  Transmission Date: 20230721
  Serious: Yes (Other)
  Sender: FDA-Public Use
  Company Number: US-002147023-NVSC2023US103330

PATIENT
  Sex: Female
  Weight: 157.8 kg

DRUGS (14)
  1. MAYZENT [Suspect]
     Active Substance: SIPONIMOD
     Indication: Relapsing-remitting multiple sclerosis
     Dosage: 2 MG, QD
     Route: 048
  2. MAYZENT [Suspect]
     Active Substance: SIPONIMOD
     Indication: Clinically isolated syndrome
  3. MAYZENT [Suspect]
     Active Substance: SIPONIMOD
     Indication: Secondary progressive multiple sclerosis
  4. BACLOFEN [Concomitant]
     Active Substance: BACLOFEN
     Indication: Product used for unknown indication
     Dosage: 1 DOSAGE FORM, TID (20 MG)
     Route: 048
  5. DALFAMPRIDINE [Concomitant]
     Active Substance: DALFAMPRIDINE
     Indication: Product used for unknown indication
     Dosage: 1 DOSAGE FORM, Q12H (10 MG) (EXTENDED RELEASE TABLET)
     Route: 048
  6. IBUPROFEN [Concomitant]
     Active Substance: IBUPROFEN
     Indication: Product used for unknown indication
     Dosage: 1 DOSAGE FORM (200 MG AS NEEDED)
     Route: 065
  7. LACOSAMIDE [Concomitant]
     Active Substance: LACOSAMIDE
     Indication: Product used for unknown indication
     Dosage: 1 DOSAGE FORM, BID (150 MG)
     Route: 048
  8. LINZESS [Concomitant]
     Active Substance: LINACLOTIDE
     Indication: Product used for unknown indication
     Dosage: 1 DOSAGE FORM, QD (145 UG)
     Route: 048
  9. VALIUM [Concomitant]
     Active Substance: DIAZEPAM
     Indication: Product used for unknown indication
     Dosage: 1 DOSAGE FORM (10 MG) (30-40 MINUTES PRIOR TO MRI 1 AT THE TIME OF MRI)
     Route: 048
  10. VALIUM [Concomitant]
     Active Substance: DIAZEPAM
     Dosage: 1 DOSAGE FORM (10 MG) (30 MIN, PRIOR TO MRI MAY REPEAT AT THE START AND ONCE DURING IF NEEDED)
     Route: 065
  11. VIMPAT [Concomitant]
     Active Substance: LACOSAMIDE
     Indication: Product used for unknown indication
     Dosage: 1 DOSAGE FORM, BID (150 MG)
     Route: 048
  12. VITAMIN D3 [Concomitant]
     Active Substance: CHOLECALCIFEROL
     Indication: Product used for unknown indication
     Dosage: 1 DOSAGE FORM, QD (2000 UNIT)
     Route: 065
  13. VITAMIN D3 [Concomitant]
     Active Substance: CHOLECALCIFEROL
     Dosage: 50 UG, BID (2000 UNIT)
     Route: 065
  14. VYVANSE [Concomitant]
     Active Substance: LISDEXAMFETAMINE DIMESYLATE
     Indication: Product used for unknown indication
     Dosage: 1 DOSAGE FORM, QD (50 MG)
     Route: 048

REACTIONS (2)
  - Blood pressure systolic increased [Unknown]
  - Fatigue [Recovering/Resolving]
